FAERS Safety Report 23768326 (Version 2)
Quarter: 2024Q2

REPORT INFORMATION
  Report Type: Spontaneous
  Country: US (occurrence: US)
  Receive Date: 20240422
  Receipt Date: 20240430
  Transmission Date: 20240715
  Serious: Yes (Life-Threatening, Hospitalization, Other)
  Sender: FDA-Public Use
  Company Number: US-MLMSERVICE-20240403-PI012798-00270-1

PATIENT
  Age: 3 Decade
  Sex: Male

DRUGS (14)
  1. METHYLPREDNISOLONE SODIUM SUCCINATE [Suspect]
     Active Substance: METHYLPREDNISOLONE SODIUM SUCCINATE
     Indication: Dermatomyositis
     Dosage: 48 MG, 1X/DAY
     Route: 042
  2. METHYLPREDNISOLONE SODIUM SUCCINATE [Suspect]
     Active Substance: METHYLPREDNISOLONE SODIUM SUCCINATE
     Indication: Immunosuppressant drug therapy
  3. PREDNISONE [Suspect]
     Active Substance: PREDNISONE
     Indication: Poikiloderma
     Dosage: 4-WEEK TRIAL OF PREDNISONE (60?MG X 2 WEEKS, 40?MG X 1?WEEK, 60?MG X 1?WEEK)
  4. PREDNISONE [Suspect]
     Active Substance: PREDNISONE
     Dosage: 4-WEEK TRIAL OF PREDNISONE (60?MG X 2 WEEKS, 40?MG X 1?WEEK, 60?MG X 1?WEEK)
  5. PREDNISONE [Suspect]
     Active Substance: PREDNISONE
     Dosage: 4-WEEK TRIAL OF PREDNISONE (60?MG X 2 WEEKS, 40?MG X 1?WEEK, 60?MG X 1?WEEK)
  6. PREDNISONE [Suspect]
     Active Substance: PREDNISONE
     Dosage: 20 MG
  7. CEFTRIAXONE [Concomitant]
     Active Substance: CEFTRIAXONE\CEFTRIAXONE SODIUM
     Indication: Diverticulitis
     Route: 042
  8. HEPARIN [Concomitant]
     Active Substance: HEPARIN SODIUM
     Indication: Anticoagulant therapy
     Route: 042
  9. HEPARIN [Concomitant]
     Active Substance: HEPARIN SODIUM
     Indication: Pulmonary embolism
  10. TACROLIMUS [Concomitant]
     Active Substance: TACROLIMUS
     Indication: Dermatomyositis
     Dosage: 1 MG, 2X/DAY
     Route: 048
  11. METRONIDAZOLE [Concomitant]
     Active Substance: METRONIDAZOLE
     Indication: Diverticulitis
     Route: 042
  12. MYCOPHENOLATE MOFETIL [Concomitant]
     Active Substance: MYCOPHENOLATE MOFETIL
     Indication: Dermatomyositis
     Dosage: 500?MG DAILY ORALLY FOR 9 MONTHS
     Route: 048
  13. MYCOPHENOLATE MOFETIL [Concomitant]
     Active Substance: MYCOPHENOLATE MOFETIL
     Dosage: 1500 MG, 2X/DAY(INCREASED)
     Route: 048
  14. HUMAN IMMUNOGLOBULIN G [Concomitant]
     Active Substance: HUMAN IMMUNOGLOBULIN G
     Indication: Dermatomyositis
     Dosage: 140?G, 2?G/KG OVER 4?DAYS
     Route: 042

REACTIONS (3)
  - Substance-induced psychotic disorder [Recovering/Resolving]
  - Febrile neutropenia [Recovering/Resolving]
  - Septic shock [Recovering/Resolving]
